FAERS Safety Report 5577775-1 (Version None)
Quarter: 2007Q4

REPORT INFORMATION
  Report Type: 
  Country: None (occurrence: None)
  Receive Date: 20071227
  Receipt Date: 20071207
  Transmission Date: 20080405
  Serious: Yes (Other)
  Sender: FDA-Public Use
  Company Number: ISPH-2007-0043

PATIENT
  Sex: Female

DRUGS (2)
  1. AZASITE [Suspect]
     Indication: PROPHYLAXIS
     Dosage: 1 GTT, BID, OPTHALMIC, 1 GTT, QD, OPTHALMIC
     Route: 047
     Dates: start: 20071130, end: 20071201
  2. AZASITE [Suspect]
     Indication: PROPHYLAXIS
     Dosage: 1 GTT, BID, OPTHALMIC, 1 GTT, QD, OPTHALMIC
     Route: 047
     Dates: start: 20071202, end: 20071206

REACTIONS (4)
  - CORNEAL OPACITY [None]
  - EYE INFLAMMATION [None]
  - FOREIGN BODY IN EYE [None]
  - POST PROCEDURAL COMPLICATION [None]
